FAERS Safety Report 12060149 (Version 1)
Quarter: 2016Q1

REPORT INFORMATION
  Report Type: Spontaneous
  Country: IT (occurrence: IT)
  Receive Date: 20160210
  Receipt Date: 20160210
  Transmission Date: 20160526
  Serious: Yes (Other)
  Sender: FDA-Public Use
  Company Number: IT-TEVA-631988ACC

PATIENT
  Age: 36 Year
  Sex: Female

DRUGS (2)
  1. PANTOPRAZOLO TEVA GENERICS - TEVA ITALIA S.R.L. [Suspect]
     Active Substance: PANTOPRAZOLE SODIUM
     Indication: ABDOMINAL PAIN UPPER
     Dosage: 1 DOSAGE FORMS DAILY; 1 DF DAILY
     Route: 048
     Dates: start: 20150102, end: 20150109
  2. RIOPAN - TAKEDA ITALIA S.P.A. [Suspect]
     Active Substance: MAGALDRATE
     Indication: ABDOMINAL PAIN UPPER
     Dosage: 1 DOSAGE FORMS DAILY; 1 DF DAILY
     Route: 048
     Dates: start: 20150102, end: 20150109

REACTIONS (4)
  - Urticaria [Recovering/Resolving]
  - Pruritus generalised [Recovering/Resolving]
  - Rash [Recovering/Resolving]
  - Dyspnoea [Recovering/Resolving]

NARRATIVE: CASE EVENT DATE: 20150108
